FAERS Safety Report 12523199 (Version 1)
Quarter: 2016Q3

REPORT INFORMATION
  Report Type: Spontaneous
  Country: US (occurrence: US)
  Receive Date: 20160702
  Receipt Date: 20160702
  Transmission Date: 20161109
  Serious: Yes (Hospitalization, Other)
  Sender: FDA-Public Use
  Company Number: US-ZYDUS-011480

PATIENT
  Age: 78 Year
  Sex: Female

DRUGS (1)
  1. LOSARTAN. [Suspect]
     Active Substance: LOSARTAN
     Indication: PRODUCT USED FOR UNKNOWN INDICATION
     Route: 065

REACTIONS (5)
  - Megakaryocytes increased [Recovered/Resolved]
  - Petechiae [Recovered/Resolved]
  - Haematuria [Recovered/Resolved]
  - Immune thrombocytopenic purpura [Recovered/Resolved]
  - Lip haematoma [Recovered/Resolved]
